FAERS Safety Report 10363066 (Version 1)
Quarter: 2014Q1

REPORT INFORMATION
  Report Type: Spontaneous
  Country: US (occurrence: None)
  Receive Date: 20140306
  Receipt Date: 20140306
  Transmission Date: 20141002
  Serious: Yes (Other)
  Sender: FDA-Public Use
  Company Number: 163-21880-13054848

PATIENT
  Age: 84 Year
  Sex: Female

DRUGS (7)
  1. REVLIMID [Suspect]
     Indication: PLASMA CELL MYELOMA
     Route: 048
     Dates: start: 201304, end: 201305
  2. CARTIA (ACETYLSALICYLIC ACID) (UNKNOWN) [Concomitant]
  3. LASIX (FUROSEMIDE) (UNKNOWN) [Concomitant]
  4. SYNTHROID (LEVOTHYROXINE SODIUM) (UNKNOWN) [Concomitant]
  5. COUMADIN (WARFARIN SODIUM) (UNKNOWN) [Concomitant]
  6. PREVACID (LANSOPRAZOLE) (UNKNOWN) [Concomitant]
  7. NEURONTIN (GABAPENTIN) (UNKNOWN) [Concomitant]

REACTIONS (2)
  - Fatigue [None]
  - Musculoskeletal pain [None]
